FAERS Safety Report 26133075 (Version 1)
Quarter: 2025Q4

REPORT INFORMATION
  Report Type: Report from Study
  Country: US (occurrence: US)
  Receive Date: 20251209
  Receipt Date: 20251209
  Transmission Date: 20260118
  Serious: Yes (Hospitalization, Other)
  Sender: RECORDATI
  Company Number: US-ORPHANEU-2025006006

PATIENT
  Sex: Female

DRUGS (1)
  1. ISTURISA [Suspect]
     Active Substance: OSILODROSTAT PHOSPHATE
     Indication: Product used for unknown indication
     Dosage: 1 MG AT AN UNKNOWN FREQUENCY
     Dates: start: 20231130, end: 20251120

REACTIONS (13)
  - Dehydration [Not Recovered/Not Resolved]
  - Haematochezia [Not Recovered/Not Resolved]
  - Abdominal discomfort [Not Recovered/Not Resolved]
  - Syncope [Not Recovered/Not Resolved]
  - Brain fog [Unknown]
  - Breast enlargement [Unknown]
  - Panic attack [Unknown]
  - Emotional disorder [Not Recovered/Not Resolved]
  - Weight decreased [Not Recovered/Not Resolved]
  - Hormone level abnormal [Unknown]
  - Anxiety [Not Recovered/Not Resolved]
  - Asthenia [Unknown]
  - Cortisol decreased [Not Recovered/Not Resolved]

NARRATIVE: CASE EVENT DATE: 20250101
